FAERS Safety Report 20974764 (Version 1)
Quarter: 2022Q2

REPORT INFORMATION
  Report Type: Spontaneous
  Country: US (occurrence: US)
  Receive Date: 20220617
  Receipt Date: 20220617
  Transmission Date: 20220721
  Serious: No
  Sender: FDA-Public Use
  Company Number: US-UNITED THERAPEUTICS-UNT-2022-013196

PATIENT
  Sex: Male

DRUGS (2)
  1. TYVASO [Suspect]
     Active Substance: TREPROSTINIL
     Indication: Pulmonary arterial hypertension
     Dosage: UNK
     Dates: start: 202202
  2. TYVASO [Suspect]
     Active Substance: TREPROSTINIL
     Dosage: 84 ?G, QID
     Dates: start: 2022

REACTIONS (2)
  - Cough [Recovering/Resolving]
  - Off label use [Unknown]

NARRATIVE: CASE EVENT DATE: 20220101
